FAERS Safety Report 9973383 (Version 2)
Quarter: 2014Q1

REPORT INFORMATION
  Report Type: Spontaneous
  Country: US (occurrence: US)
  Receive Date: 20140306
  Receipt Date: 20140328
  Transmission Date: 20141002
  Serious: Yes (Hospitalization)
  Sender: FDA-Public Use
  Company Number: US-JNJFOC-20140300428

PATIENT
  Age: 62 Year
  Sex: Female

DRUGS (8)
  1. XARELTO [Suspect]
     Indication: THROMBOSIS PROPHYLAXIS
     Route: 048
     Dates: start: 20140211
  2. XARELTO [Suspect]
     Indication: KNEE ARTHROPLASTY
     Route: 048
     Dates: start: 20140211
  3. COUMADIN [Suspect]
     Indication: THROMBOSIS PROPHYLAXIS
     Route: 065
  4. COUMADIN [Suspect]
     Indication: KNEE ARTHROPLASTY
     Route: 065
  5. PERCOCET [Concomitant]
     Indication: PROCEDURAL PAIN
     Dosage: DOSE: 7.5/325 (UNIT UNSPECIFIED)
     Route: 065
     Dates: start: 20140212
  6. CLONIDINE [Concomitant]
     Route: 065
  7. FUROSEMIDE [Concomitant]
     Route: 065
  8. POTASSIUM [Concomitant]
     Route: 065

REACTIONS (3)
  - Unresponsive to stimuli [Unknown]
  - Pulmonary embolism [Recovering/Resolving]
  - International normalised ratio increased [Unknown]
